FAERS Safety Report 9636031 (Version 2)
Quarter: 2013Q4

REPORT INFORMATION
  Report Type: Spontaneous
  Country: FR (occurrence: FR)
  Receive Date: 20131021
  Receipt Date: 20131210
  Transmission Date: 20140711
  Serious: Yes (Death)
  Sender: FDA-Public Use
  Company Number: FR-TEVA-437289ISR

PATIENT
  Age: 31 Year
  Sex: Male

DRUGS (4)
  1. DIAZEPAM RATIOPHARM 10MG [Suspect]
     Dosage: 3 DOSAGE FORMS DAILY;
     Route: 048
     Dates: start: 201301, end: 20130719
  2. BACLOFENE ZENTIVA 10MG [Suspect]
     Dosage: PROGRESSIVE INCREASE TO 60MG/D
     Route: 048
     Dates: start: 20130408, end: 20130719
  3. SEROPLEX 10MG [Suspect]
     Dosage: 1 DOSAGE FORMS DAILY;
     Route: 048
     Dates: start: 201205, end: 20130719
  4. ZOPICLONE RATIOPHARM [Concomitant]
     Dosage: 1 DOSAGE FORMS DAILY;

REACTIONS (2)
  - Suicidal behaviour [Fatal]
  - Completed suicide [Fatal]
